FAERS Safety Report 13583960 (Version 2)
Quarter: 2019Q2

REPORT INFORMATION
  Report Type: Report from Study
  Country: JP (occurrence: JP)
  Receive Date: 20170526
  Receipt Date: 20190411
  Transmission Date: 20190711
  Serious: Yes (Death, Other)
  Sender: FDA-Public Use
  Company Number: JP-AMGEN-JPNCT2017079602

PATIENT
  Age: 77 Year
  Sex: Female
  Weight: 52 kg

DRUGS (20)
  1. ATELEC [Concomitant]
     Active Substance: CILNIDIPINE
     Dosage: 10 MILLIGRAM, BID, MORNING AND EVENING
     Route: 048
  2. OMEPRAL [OMEPRAZOLE] [Concomitant]
     Dosage: 10 MG, QD, MORNING AND EVENING
     Route: 048
  3. LEVEMIR [Concomitant]
     Active Substance: INSULIN DETEMIR
     Dosage: 9 INTERNATIONAL UNIT, QD, MORNING
     Route: 058
     Dates: start: 20091111
  4. DARBEPOETIN ALFA [Suspect]
     Active Substance: DARBEPOETIN ALFA
     Dosage: 40 MICROGRAM, QD
     Route: 058
     Dates: start: 20161005, end: 20161005
  5. DARBEPOETIN ALFA [Suspect]
     Active Substance: DARBEPOETIN ALFA
     Dosage: 40 MICROGRAM, QD
     Route: 058
     Dates: start: 20160706, end: 20160706
  6. ARGAMATE [Concomitant]
     Active Substance: CALCIUM POLYSTYRENE SULFONATE
     Dosage: 1 DOSAGE FORM, TID, , AFTER MORNING, LUNCH AND DINNER
     Route: 048
  7. DARBEPOETIN ALFA [Suspect]
     Active Substance: DARBEPOETIN ALFA
     Dosage: 40 MICROGRAM, QD
     Route: 058
     Dates: start: 20160224, end: 20160224
  8. DARBEPOETIN ALFA [Suspect]
     Active Substance: DARBEPOETIN ALFA
     Dosage: 40 MICROGRAM, QD
     Route: 058
     Dates: start: 20160601, end: 20160601
  9. DARBEPOETIN ALFA [Suspect]
     Active Substance: DARBEPOETIN ALFA
     Dosage: 40 MICROGRAM, QD
     Route: 058
     Dates: start: 20160817, end: 20160817
  10. OLMETEC [Concomitant]
     Active Substance: OLMESARTAN MEDOXOMIL
     Dosage: 20 MILLIGRAM, BID, MORNING AND EVENING
     Route: 048
  11. PATANOL [Concomitant]
     Active Substance: OLOPATADINE HYDROCHLORIDE
     Dosage: BOTH EYES (AS THE DOCTOR EXPLAINS)
     Route: 047
     Dates: start: 20170222
  12. DARBEPOETIN ALFA [Suspect]
     Active Substance: DARBEPOETIN ALFA
     Dosage: 40 MICROGRAM, QD
     Route: 058
     Dates: start: 20160127, end: 20160127
  13. DARBEPOETIN ALFA [Suspect]
     Active Substance: DARBEPOETIN ALFA
     Dosage: 60 MICROGRAM
     Route: 065
     Dates: start: 20170419
  14. NOVORAPID [Concomitant]
     Active Substance: INSULIN ASPART
     Dosage: MORNING 2 NOON 2 EVENING, TID
     Route: 065
     Dates: start: 20091114
  15. DARBEPOETIN ALFA [Suspect]
     Active Substance: DARBEPOETIN ALFA
     Dosage: 40 MICROGRAM, QD
     Route: 058
     Dates: start: 20160330, end: 20160330
  16. DARBEPOETIN ALFA [Suspect]
     Active Substance: DARBEPOETIN ALFA
     Dosage: 40 MICROGRAM, QD
     Route: 058
     Dates: start: 20160427, end: 20160427
  17. DARBEPOETIN ALFA [Suspect]
     Active Substance: DARBEPOETIN ALFA
     Dosage: 40 MICROGRAM, QD
     Route: 058
     Dates: start: 20161116, end: 20161116
  18. DARBEPOETIN ALFA [Suspect]
     Active Substance: DARBEPOETIN ALFA
     Indication: RENAL IMPAIRMENT
     Dosage: 40 MICROGRAM, QD
     Route: 058
     Dates: start: 20151028, end: 20151028
  19. DARBEPOETIN ALFA [Suspect]
     Active Substance: DARBEPOETIN ALFA
     Dosage: 40 MICROGRAM, QD
     Route: 058
     Dates: start: 20160106, end: 20160106
  20. DARBEPOETIN ALFA [Suspect]
     Active Substance: DARBEPOETIN ALFA
     Dosage: 40 MICROGRAM, QD
     Route: 058
     Dates: start: 20161221, end: 20161221

REACTIONS (4)
  - Uterine prolapse [Recovered/Resolved]
  - Cerebral infarction [Fatal]
  - Uterine prolapse [Recovered/Resolved]
  - Cystitis [Recovered/Resolved]

NARRATIVE: CASE EVENT DATE: 20160427
